FAERS Safety Report 6293372-7 (Version None)
Quarter: 2009Q3

REPORT INFORMATION
  Report Type: 
  Country: None (occurrence: None)
  Receive Date: 20090731
  Receipt Date: 20090722
  Transmission Date: 20100115
  Serious: Yes (Other)
  Sender: FDA-Public Use
  Company Number: CA-MERCK-0907CAN00103

PATIENT
  Age: 24 Month
  Sex: Male
  Weight: 14 kg

DRUGS (3)
  1. SINGULAIR [Suspect]
     Route: 048
  2. CETIRIZINE HYDROCHLORIDE [Suspect]
     Route: 065
  3. BECLOMETHASONE DIPROPIONATE [Concomitant]
     Route: 065

REACTIONS (10)
  - ABDOMINAL PAIN [None]
  - DIARRHOEA [None]
  - EPISTAXIS [None]
  - EYE DISORDER [None]
  - HEADACHE [None]
  - HYPERSENSITIVITY [None]
  - PRURITUS [None]
  - PSYCHOMOTOR HYPERACTIVITY [None]
  - SOMNOLENCE [None]
  - URTICARIA [None]
